FAERS Safety Report 7348202-9 (Version None)
Quarter: 2011Q1

REPORT INFORMATION
  Report Type: 
  Country: None (occurrence: None)
  Receive Date: 20110225
  Receipt Date: 20110103
  Transmission Date: 20110831
  Serious: No
  Sender: FDA-Public Use
  Company Number: 321077

PATIENT
  Age: 55 Year
  Sex: Female

DRUGS (2)
  1. VICTOZA [Suspect]
     Indication: TYPE 2 DIABETES MELLITUS
     Dosage: 1.8 MG, QD, SUBCUTANEOUS,1.8 MG, QD, SUBCUTANEOUS
     Route: 058
  2. ANTIBIOTICS [Suspect]
     Indication: FURUNCLE
     Dosage: ORAL
     Route: 048

REACTIONS (2)
  - NAUSEA [None]
  - VOMITING [None]
